FAERS Safety Report 7035308-7 (Version None)
Quarter: 2010Q4

REPORT INFORMATION
  Report Type: 
  Country: None (occurrence: None)
  Receive Date: 20101008
  Receipt Date: 20100930
  Transmission Date: 20110411
  Serious: Yes (Hospitalization)
  Sender: FDA-Public Use
  Company Number: B0677053A

PATIENT
  Sex: Female

DRUGS (13)
  1. VENTOLIN [Suspect]
     Dosage: 1PUFF THREE TIMES PER DAY
     Route: 055
     Dates: start: 20100212, end: 20100216
  2. LASIX [Suspect]
     Dosage: 40MG PER DAY
     Route: 048
     Dates: start: 20100212, end: 20100216
  3. CORTANCYL [Suspect]
     Dosage: 40MG PER DAY
     Route: 048
     Dates: start: 20100212, end: 20100216
  4. TAVANIC [Suspect]
     Dosage: 500MG TWICE PER DAY
     Route: 048
     Dates: start: 20100212, end: 20100216
  5. PULMICORT [Suspect]
     Dosage: 1UNIT THREE TIMES PER DAY
     Route: 055
     Dates: start: 20100212, end: 20100216
  6. CACIT D3 [Concomitant]
     Indication: VITAMIN D DEFICIENCY
     Dosage: 1UNIT PER DAY
     Route: 048
     Dates: end: 20100216
  7. FORLAX [Concomitant]
     Indication: CONSTIPATION
     Route: 048
     Dates: end: 20100216
  8. VASTAREL [Concomitant]
     Indication: ANGINA PECTORIS
     Dosage: 35MG PER DAY
     Route: 048
     Dates: end: 20100216
  9. DIAMICRON [Concomitant]
     Dosage: 30MG TWICE PER DAY
     Route: 048
     Dates: end: 20100216
  10. HYPERIUM [Concomitant]
     Dosage: 1MG PER DAY
     Route: 048
  11. PLAVIX [Concomitant]
     Indication: ATHEROSCLEROSIS PROPHYLAXIS
     Dosage: 75MG PER DAY
     Route: 048
  12. COAPROVEL [Concomitant]
     Dosage: 1TAB PER DAY
     Route: 048
     Dates: end: 20100216
  13. ARICEPT [Concomitant]
     Indication: DEMENTIA ALZHEIMER'S TYPE
     Dosage: 10MG PER DAY
     Route: 048

REACTIONS (5)
  - CEREBRAL ATROPHY [None]
  - CONFUSIONAL STATE [None]
  - DEHYDRATION [None]
  - HALLUCINATION [None]
  - LEUKOARAIOSIS [None]
